FAERS Safety Report 7211131-5 (Version None)
Quarter: 2011Q1

REPORT INFORMATION
  Report Type: 
  Country: None (occurrence: None)
  Receive Date: 20110105
  Receipt Date: 20101227
  Transmission Date: 20110831
  Serious: Yes (Hospitalization, Other)
  Sender: FDA-Public Use
  Company Number: US-SANOFI-AVENTIS-2011SA000160

PATIENT
  Sex: Female
  Weight: 64 kg

DRUGS (4)
  1. LANTUS [Suspect]
     Indication: DIABETES MELLITUS
     Dosage: DOSE:22 UNIT(S)
     Route: 058
     Dates: start: 20060101
  2. HUMALOG [Suspect]
     Indication: DIABETES MELLITUS
     Dosage: SLIDING SCALE
     Dates: start: 20060101, end: 20100901
  3. SYNTHROID [Concomitant]
     Indication: HYPOTHYROIDISM
  4. METFORMIN [Concomitant]
     Indication: DIABETES MELLITUS
     Dates: start: 20060101

REACTIONS (4)
  - AUTOIMMUNE THYROIDITIS [None]
  - RASH PRURITIC [None]
  - WEIGHT DECREASED [None]
  - HYPOGLYCAEMIC SEIZURE [None]
